FAERS Safety Report 21640045 (Version 3)
Quarter: 2022Q4

REPORT INFORMATION
  Report Type: Report from Study
  Country: US (occurrence: US)
  Receive Date: 20221124
  Receipt Date: 20221207
  Transmission Date: 20230113
  Serious: No
  Sender: FDA-Public Use
  Company Number: US-002147023-NVSC2022US264008

PATIENT
  Sex: Female

DRUGS (2)
  1. OMNITROPE [Suspect]
     Active Substance: SOMATROPIN
     Indication: Short stature
     Dosage: 1.8 MG, QD
     Route: 058
     Dates: start: 20221119
  2. OMNITROPE [Suspect]
     Active Substance: SOMATROPIN
     Dosage: 1.8 MG, QD
     Route: 058

REACTIONS (3)
  - Nausea [Unknown]
  - Injection site discharge [Not Recovered/Not Resolved]
  - Injection site haemorrhage [Not Recovered/Not Resolved]
